FAERS Safety Report 7481060-0 (Version None)
Quarter: 2011Q2

REPORT INFORMATION
  Report Type: 
  Country: None (occurrence: None)
  Receive Date: 20110516
  Receipt Date: 20090930
  Transmission Date: 20111010
  Serious: Yes (Other)
  Sender: FDA-Public Use
  Company Number: US-BAYER-200934455NA

PATIENT
  Age: 72 Year
  Sex: Female
  Weight: 97 kg

DRUGS (15)
  1. FENTANYL [Concomitant]
     Indication: PRODUCT USED FOR UNKNOWN INDICATION
     Dosage: 3CC, 2CC, 5CC, 5C, 5CC, 5CC
     Route: 042
     Dates: start: 20020810, end: 20020810
  2. PREMARIN [Concomitant]
     Indication: PRODUCT USED FOR UNKNOWN INDICATION
     Dosage: 1.25 MG, UNK
     Route: 048
  3. TRASYLOL [Suspect]
     Dosage: 200 ML PUMP PRIME
     Route: 042
     Dates: start: 20020810, end: 20020810
  4. TRASYLOL [Suspect]
     Dosage: 50 CC/HR
     Route: 042
     Dates: start: 20020810, end: 20020810
  5. TRANXENE [Concomitant]
     Indication: PRODUCT USED FOR UNKNOWN INDICATION
  6. VECURONIUM BROMIDE [Concomitant]
     Indication: PRODUCT USED FOR UNKNOWN INDICATION
     Dosage: 2MG, 12MG, 6MG, 4MG
     Route: 042
     Dates: start: 20020810, end: 20020810
  7. RED BLOOD CELLS [Concomitant]
     Dosage: 1 U, UNK
     Route: 042
     Dates: start: 20020810
  8. TRASYLOL [Suspect]
     Indication: CORONARY ARTERY BYPASS
     Dosage: 1 ML LOADING DOSE
     Route: 042
     Dates: start: 20020810, end: 20020810
  9. LIPITOR [Concomitant]
     Indication: PRODUCT USED FOR UNKNOWN INDICATION
     Dosage: 10 MG, UNK
     Route: 048
  10. TRASYLOL [Suspect]
     Dosage: 200 CC BOLUS
     Route: 042
     Dates: start: 20020810, end: 20020810
  11. PROTONIX [Concomitant]
     Indication: PRODUCT USED FOR UNKNOWN INDICATION
     Dosage: 40 MG, UNK
     Route: 048
  12. VERSED [Concomitant]
     Indication: PRODUCT USED FOR UNKNOWN INDICATION
     Dosage: 2MG, 2MG, 1MG
     Route: 042
     Dates: start: 20020810, end: 20020810
  13. ZESTRIL [Concomitant]
     Indication: PRODUCT USED FOR UNKNOWN INDICATION
     Dosage: 10 MG, UNK
     Route: 048
  14. HEPARIN [Concomitant]
     Indication: PRODUCT USED FOR UNKNOWN INDICATION
     Dosage: 40K
     Route: 042
     Dates: start: 20020810, end: 20020810
  15. PROTAMINE SULFATE [Concomitant]
     Indication: PRODUCT USED FOR UNKNOWN INDICATION
     Dosage: 500 MG, UNK
     Route: 042
     Dates: start: 20020810, end: 20020810

REACTIONS (10)
  - RENAL FAILURE [None]
  - EMOTIONAL DISTRESS [None]
  - INJURY [None]
  - RENAL INJURY [None]
  - ANXIETY [None]
  - FEAR [None]
  - RENAL IMPAIRMENT [None]
  - STRESS [None]
  - PAIN [None]
  - UNEVALUABLE EVENT [None]
